FAERS Safety Report 14975548 (Version 1)
Quarter: 2018Q2

REPORT INFORMATION
  Report Type: Spontaneous
  Country: GB (occurrence: GB)
  Receive Date: 20180605
  Receipt Date: 20180605
  Transmission Date: 20180711
  Serious: Yes (Other)
  Sender: FDA-Public Use
  Company Number: GB-TAKEDA-2018MPI006958

PATIENT

DRUGS (4)
  1. BORTEZOMIB [Suspect]
     Active Substance: BORTEZOMIB
     Indication: PLASMA CELL MYELOMA
     Dosage: UNK
     Route: 058
  2. DARATUMUMAB [Suspect]
     Active Substance: DARATUMUMAB
     Indication: PLASMA CELL MYELOMA
     Dosage: UNK
     Route: 042
     Dates: start: 20160727
  3. DARATUMUMAB [Suspect]
     Active Substance: DARATUMUMAB
     Dosage: UNK
     Route: 042
  4. LENALIDOMIDE [Suspect]
     Active Substance: LENALIDOMIDE
     Indication: PLASMA CELL MYELOMA
     Dosage: UNK
     Route: 065

REACTIONS (17)
  - Crossmatch incompatible [Unknown]
  - Bronchospasm [Unknown]
  - Chest pain [Unknown]
  - Infusion related reaction [Unknown]
  - Pyrexia [Unknown]
  - Throat irritation [Unknown]
  - Laryngospasm [Unknown]
  - Rhinitis [Unknown]
  - Rash [Unknown]
  - Nasal congestion [Unknown]
  - Dyspnoea [Unknown]
  - Laboratory test interference [Unknown]
  - Disease progression [Unknown]
  - Wheezing [Unknown]
  - Hypotension [Unknown]
  - Cough [Unknown]
  - Nausea [Unknown]
